FAERS Safety Report 9723648 (Version 1)
Quarter: 2013Q4

REPORT INFORMATION
  Report Type: Spontaneous
  Country: US (occurrence: US)
  Receive Date: 20131202
  Receipt Date: 20131202
  Transmission Date: 20140711
  Serious: Yes (Other)
  Sender: FDA-Public Use
  Company Number: US-TEVA-447510USA

PATIENT
  Age: 57 Year
  Sex: Female

DRUGS (2)
  1. METHOTREXATE [Suspect]
     Dosage: 15 MG/WEEK
     Route: 048
  2. ADALIMUMAB [Suspect]
     Dosage: 40 MG/WEEK
     Route: 065

REACTIONS (7)
  - Neurotoxicity [Unknown]
  - Headache [Recovered/Resolved]
  - Dysphemia [Recovered/Resolved]
  - Action tremor [Recovered/Resolved]
  - Paraesthesia [Unknown]
  - Bronchitis [Unknown]
  - Dyspnoea [Unknown]
